FAERS Safety Report 7612831-5 (Version None)
Quarter: 2011Q3

REPORT INFORMATION
  Report Type: 
  Country: None (occurrence: None)
  Receive Date: 20110708
  Receipt Date: 20100521
  Transmission Date: 20111222
  Serious: Yes (Hospitalization)
  Sender: FDA-Public Use
  Company Number: GER/GER/10/0013309

PATIENT
  Age: 43 Year
  Sex: Female

DRUGS (1)
  1. VENLAFAXINE [Suspect]
     Indication: MAJOR DEPRESSION
     Dosage: 300 MG, 1 IN 1 TOTAL, ORAL
     Route: 048

REACTIONS (4)
  - METANEPHRINE URINE INCREASED [None]
  - ACCIDENTAL OVERDOSE [None]
  - ANGINA PECTORIS [None]
  - STRESS CARDIOMYOPATHY [None]
